FAERS Safety Report 5988981-6 (Version None)
Quarter: 2008Q4

REPORT INFORMATION
  Report Type: 
  Country: None (occurrence: None)
  Receive Date: 20081210
  Receipt Date: 20081205
  Transmission Date: 20090506
  Serious: Yes (Hospitalization)
  Sender: FDA-Public Use
  Company Number: A0725136A

PATIENT
  Age: 55 Year
  Sex: Female
  Weight: 120.5 kg

DRUGS (36)
  1. AVANDIA [Suspect]
     Dosage: 4MG TWICE PER DAY
     Route: 048
     Dates: start: 20000101, end: 20070101
  2. REGULAR INSULIN [Concomitant]
     Dosage: 20MG TWICE PER DAY
     Dates: start: 19950101, end: 20080101
  3. NITROGLYCERIN [Concomitant]
     Dates: start: 20020101
  4. ACTOS [Concomitant]
  5. JANUVIA [Concomitant]
  6. CEPHALEXIN [Concomitant]
  7. PREDNISONE TAB [Concomitant]
  8. LORATADINE [Concomitant]
  9. HYDROCODONE BITARTRATE + ACETAMINOPHEN [Concomitant]
  10. GLYBURIDE [Concomitant]
  11. ALBUTEROL [Concomitant]
  12. AZATHIOPRINE [Concomitant]
  13. NEXIUM [Concomitant]
  14. RIDAURA [Concomitant]
  15. HUMULIN [Concomitant]
  16. IBUPROFEN TABLETS [Concomitant]
  17. CELEXA [Concomitant]
  18. ZETIA [Concomitant]
  19. NOVOLIN [Concomitant]
  20. LANTUS [Concomitant]
  21. ALPHAGAN [Concomitant]
  22. CITALOPRAM HYDROBROMIDE [Concomitant]
  23. LEVAQUIN [Concomitant]
  24. PLAVIX [Concomitant]
  25. NEURONTIN [Concomitant]
  26. PREVACID [Concomitant]
  27. PROCARDIA [Concomitant]
  28. LEXAPRO [Concomitant]
  29. TRAMADOL HCL [Concomitant]
  30. TOPROL-XL [Concomitant]
  31. FUROSEMIDE [Concomitant]
  32. LORAZEPAM [Concomitant]
  33. VALIUM [Concomitant]
  34. PROZAC [Concomitant]
  35. PAXIL [Concomitant]
  36. ZOLOFT [Concomitant]

REACTIONS (10)
  - ACUTE CORONARY SYNDROME [None]
  - ARTERIOSCLEROSIS [None]
  - CARDIAC FAILURE CONGESTIVE [None]
  - CARDIOVASCULAR DISORDER [None]
  - CAROTID ARTERY DISEASE [None]
  - HEART DISEASE CONGENITAL [None]
  - HEART INJURY [None]
  - MYOCARDIAL INFARCTION [None]
  - PERIPHERAL VASCULAR DISORDER [None]
  - THROMBOSIS [None]
